FAERS Safety Report 9397180 (Version 15)
Quarter: 2017Q2

REPORT INFORMATION
  Report Type: Report from Study
  Country: CA (occurrence: CA)
  Receive Date: 20130712
  Receipt Date: 20170414
  Transmission Date: 20170830
  Serious: Yes (Hospitalization, Other)
  Sender: FDA-Public Use
  Company Number: PHHY2012CA080763

PATIENT
  Age: 48 Year
  Sex: Male

DRUGS (2)
  1. SANDOSTATIN LAR DEPOT [Suspect]
     Active Substance: OCTREOTIDE ACETATE
     Dosage: 20 MG, QMO (ONCE A MONTH)
     Route: 030
  2. SANDOSTATIN LAR DEPOT [Suspect]
     Active Substance: OCTREOTIDE ACETATE
     Indication: ACROMEGALY
     Dosage: 20 MG, QMO (ONCE A MONTH)
     Route: 030
     Dates: start: 20080923

REACTIONS (12)
  - Neoplasm malignant [Unknown]
  - Body temperature decreased [Unknown]
  - Meningitis [Recovering/Resolving]
  - Seizure [Unknown]
  - Rash pruritic [Unknown]
  - Blood pressure increased [Unknown]
  - Weight increased [Unknown]
  - Injection site haemorrhage [Recovered/Resolved]
  - Aggression [Unknown]
  - Oedema peripheral [Unknown]
  - Oedema [Unknown]
  - Pain in extremity [Unknown]

NARRATIVE: CASE EVENT DATE: 20120910
